FAERS Safety Report 19443744 (Version 4)
Quarter: 2021Q3

REPORT INFORMATION
  Report Type: Spontaneous
  Country: US (occurrence: US)
  Receive Date: 20210621
  Receipt Date: 20210706
  Transmission Date: 20211014
  Serious: Yes (Hospitalization, Other)
  Sender: FDA-Public Use
  Company Number: US-GLAXOSMITHKLINE-US2021132352

PATIENT
  Sex: Female

DRUGS (3)
  1. ZEJULA [Suspect]
     Active Substance: NIRAPARIB
     Dosage: 200 MG, QD
     Route: 048
     Dates: start: 20210602
  2. ZEJULA [Suspect]
     Active Substance: NIRAPARIB
     Indication: MALIGNANT PERITONEAL NEOPLASM
     Dosage: 100 MG, BID
     Route: 048
     Dates: start: 202106
  3. ZEJULA [Suspect]
     Active Substance: NIRAPARIB
     Dosage: 200 MG, QD
     Route: 048
     Dates: start: 20210604

REACTIONS (13)
  - Oropharyngeal pain [Unknown]
  - Pneumothorax [Recovering/Resolving]
  - Mouth swelling [Unknown]
  - Pharyngeal swelling [Unknown]
  - Product dose omission issue [Unknown]
  - Adverse drug reaction [Unknown]
  - Dysphagia [Unknown]
  - Cough [Unknown]
  - Oral pain [Unknown]
  - Oral disorder [Unknown]
  - Increased upper airway secretion [Unknown]
  - Malaise [Unknown]
  - Product use complaint [Unknown]
